FAERS Safety Report 5033096-7 (Version None)
Quarter: 2006Q2

REPORT INFORMATION
  Report Type: 
  Country: None (occurrence: None)
  Receive Date: 20060504
  Receipt Date: 20051213
  Transmission Date: 20061013
  Serious: Yes (Other)
  Sender: FDA-Public Use
  Company Number: PHEH2005US13457

PATIENT
  Age: 52 Year
  Sex: Female

DRUGS (3)
  1. TEGRETOL [Suspect]
     Dosage: 200 MG, QID, ORAL
     Route: 048
     Dates: start: 19900101
  2. TOPAMAX [Suspect]
     Dosage: ORAL
     Route: 048
     Dates: start: 20040101
  3. LITHIUM (LITHIUM) [Concomitant]
     Route: 048

REACTIONS (6)
  - DEPRESSION [None]
  - DRUG INTERACTION [None]
  - INSOMNIA [None]
  - LIBIDO INCREASED [None]
  - MANIA [None]
  - URINARY TRACT INFECTION [None]
